FAERS Safety Report 11073402 (Version 2)
Quarter: 2015Q2

REPORT INFORMATION
  Report Type: Spontaneous
  Country: US (occurrence: US)
  Receive Date: 20150428
  Receipt Date: 20150430
  Transmission Date: 20150821
  Serious: Yes (Other)
  Sender: FDA-Public Use
  Company Number: US-BAYER-2015-160121

PATIENT
  Age: 70 Year
  Sex: Female

DRUGS (3)
  1. BETASERON [Suspect]
     Active Substance: INTERFERON BETA-1B
     Indication: MULTIPLE SCLEROSIS
     Dosage: 0.25 MG, UNK
     Route: 058
     Dates: start: 20140207
  2. BAYER LOW DOSE [Suspect]
     Active Substance: ASPIRIN
     Dosage: UNK
  3. ALEVE [Suspect]
     Active Substance: NAPROXEN SODIUM
     Dosage: UNK

REACTIONS (10)
  - Diplopia [None]
  - Eye movement disorder [None]
  - Blepharospasm [None]
  - Myasthenia gravis [None]
  - Eyelid ptosis [None]
  - Injection site mass [None]
  - Muscular weakness [None]
  - Drug hypersensitivity [None]
  - Somnolence [None]
  - Gait disturbance [None]
